FAERS Safety Report 21101032 (Version 3)
Quarter: 2022Q3

REPORT INFORMATION
  Report Type: Spontaneous
  Country: CA (occurrence: CA)
  Receive Date: 20220719
  Receipt Date: 20220822
  Transmission Date: 20221026
  Serious: Yes (Other)
  Sender: FDA-Public Use
  Company Number: CA-PFIZER INC-202200949658

PATIENT
  Age: 36 Year
  Sex: Female

DRUGS (7)
  1. SOMATROPIN [Suspect]
     Active Substance: SOMATROPIN
     Indication: Growth hormone deficiency
     Dosage: 100 UG, 1X/DAY, DISCONTINUED
     Route: 058
     Dates: start: 20210704
  2. SOMATROPIN [Suspect]
     Active Substance: SOMATROPIN
     Dosage: 200 UG, 1X/DAY, GOQUICK 5.3MG - HOLD
     Route: 058
  3. SOMATROPIN [Suspect]
     Active Substance: SOMATROPIN
     Dosage: 200 UG, 1X/DAY, GOQUICK 5.3MG
     Route: 058
     Dates: start: 20220721
  4. BROMOCRIPTINE [BROMOCRIPTINE MESILATE] [Concomitant]
     Dosage: 7.5 MG, 1X/DAY
  5. PREDNISONE [Concomitant]
     Active Substance: PREDNISONE
     Dosage: 7.5 MG, 1X/DAY
  6. SYNTHROID [Concomitant]
     Active Substance: LEVOTHYROXINE SODIUM
     Dosage: 750 UG, 1X/DAY
  7. SYNTHROID [Concomitant]
     Active Substance: LEVOTHYROXINE SODIUM
     Dosage: 75 UG, DAILY

REACTIONS (1)
  - Abortion spontaneous [Unknown]

NARRATIVE: CASE EVENT DATE: 20220701
